FAERS Safety Report 24052683 (Version 1)
Quarter: 2024Q3

REPORT INFORMATION
  Report Type: Report from Study
  Country: US (occurrence: US)
  Receive Date: 20240705
  Receipt Date: 20240705
  Transmission Date: 20241017
  Serious: Yes (Other)
  Sender: NOVARTIS
  Company Number: US-002147023-NVSC2024US137823

PATIENT
  Sex: Female

DRUGS (2)
  1. ENTRESTO [Suspect]
     Active Substance: SACUBITRIL\VALSARTAN
     Indication: Product used for unknown indication
     Dosage: UNK UNK, OTHER (STRENGTH 49/51 MG)
     Route: 048
     Dates: start: 202404
  2. ENTRESTO [Suspect]
     Active Substance: SACUBITRIL\VALSARTAN
     Dosage: UNK UNK, OTHER (STRENGTH 24/26 MG) (POSSIBLY HAS BEEN CUTTING PILLS IN HALF)
     Route: 048

REACTIONS (4)
  - Syncope [Unknown]
  - Hypotension [Unknown]
  - Dizziness [Unknown]
  - Wrong technique in product usage process [Unknown]
